FAERS Safety Report 17669999 (Version 3)
Quarter: 2020Q4

REPORT INFORMATION
  Report Type: Spontaneous
  Country: US (occurrence: US)
  Receive Date: 20200415
  Receipt Date: 20201126
  Transmission Date: 20210113
  Serious: No
  Sender: FDA-Public Use
  Company Number: US-PFIZER INC-2020153844

PATIENT
  Age: 58 Year
  Sex: Female

DRUGS (3)
  1. PREDNISONE. [Concomitant]
     Active Substance: PREDNISONE
     Dosage: 5 MG, DAILY
     Route: 048
  2. PREDNISONE. [Concomitant]
     Active Substance: PREDNISONE
     Dosage: 2.5 MG
  3. XELJANZ XR [Suspect]
     Active Substance: TOFACITINIB CITRATE
     Indication: RHEUMATOID ARTHRITIS
     Dosage: 11 MG, DAILY
     Route: 048
     Dates: start: 202004

REACTIONS (11)
  - Depressed mood [Unknown]
  - Sciatica [Unknown]
  - Oropharyngeal pain [Unknown]
  - Joint swelling [Unknown]
  - Panic attack [Recovering/Resolving]
  - Rhinorrhoea [Unknown]
  - Dyspnoea [Recovering/Resolving]
  - Fear of disease [Recovering/Resolving]
  - Weight increased [Unknown]
  - Musculoskeletal stiffness [Unknown]
  - Movement disorder [Unknown]

NARRATIVE: CASE EVENT DATE: 2020
